FAERS Safety Report 8296626-8 (Version None)
Quarter: 2012Q2

REPORT INFORMATION
  Report Type: 
  Country: None (occurrence: None)
  Receive Date: 20120418
  Receipt Date: 20120418
  Transmission Date: 20120825
  Serious: Yes (Hospitalization)
  Sender: FDA-Public Use
  Company Number: None

PATIENT
  Age: 52 Year
  Sex: Female
  Weight: 68.95 kg

DRUGS (2)
  1. AMANTADINE HCL [Concomitant]
     Indication: SEDATION
     Dosage: 100 MG
     Route: 048
  2. TIZANIDINE HCL [Suspect]
     Indication: MUSCLE SPASTICITY
     Dosage: 2 MG
     Route: 048

REACTIONS (5)
  - PSYCHOTIC DISORDER [None]
  - TINNITUS [None]
  - HALLUCINATIONS, MIXED [None]
  - EYE PAIN [None]
  - RENAL IMPAIRMENT [None]
